FAERS Safety Report 6867615-2 (Version None)
Quarter: 2010Q3

REPORT INFORMATION
  Report Type: 
  Country: None (occurrence: None)
  Receive Date: 20100722
  Receipt Date: 20090826
  Transmission Date: 20110219
  Serious: No
  Sender: FDA-Public Use
  Company Number: US-BAUSCH-2009BL004368

PATIENT
  Age: 65 Year
  Sex: Female

DRUGS (2)
  1. OPCON-A [Suspect]
     Indication: OCULAR HYPERAEMIA
     Route: 047
     Dates: end: 20090601
  2. OPCON-A [Suspect]
     Indication: EYE PAIN
     Route: 047
     Dates: end: 20090601

REACTIONS (3)
  - CONDITION AGGRAVATED [None]
  - EYE PAIN [None]
  - OCULAR HYPERAEMIA [None]
